FAERS Safety Report 5712142-9 (Version None)
Quarter: 2008Q2

REPORT INFORMATION
  Report Type: 
  Country: None (occurrence: None)
  Receive Date: 20080417
  Receipt Date: 20080403
  Transmission Date: 20081010
  Serious: Yes (Other)
  Sender: FDA-Public Use
  Company Number: 2006US002115

PATIENT
  Age: 56 Year
  Sex: Male
  Weight: 84.4 kg

DRUGS (6)
  1. PROGRAF [Suspect]
     Indication: IMMUNOSUPPRESSION
     Dosage: 1 MG, BID, ORAL
     Route: 048
     Dates: start: 20030201
  2. PROCRIT [Suspect]
     Indication: REFRACTORY ANAEMIA
     Dosage: 40000 IU, WEEKLY, SUBCUTANEOUS
     Route: 058
     Dates: start: 20051101, end: 20060724
  3. INTERFERON(INTERFERON) [Suspect]
     Indication: HEPATITIS C
     Dates: start: 20050101, end: 20051231
  4. RIBAVIRIN [Suspect]
     Indication: HEPATITIS C
     Dates: start: 20050101, end: 20051231
  5. PEGINTRON(PEGINTERFERON ALFA-2B) [Suspect]
     Indication: HEPATITIS C
     Dosage: 0.5 UG/KG, WEEKLY, 1.5 UG/KG, WEEKLY
     Dates: start: 20041101, end: 20050901
  6. PEGINTRON(PEGINTERFERON ALFA-2B) [Suspect]
     Indication: HEPATITIS C
     Dosage: 0.5 UG/KG, WEEKLY, 1.5 UG/KG, WEEKLY
     Dates: start: 20050901, end: 20051101

REACTIONS (4)
  - ANTI-ERYTHROPOIETIN ANTIBODY POSITIVE [None]
  - APLASIA PURE RED CELL [None]
  - DRUG INEFFECTIVE [None]
  - NEUTRALISING ANTIBODIES POSITIVE [None]
